FAERS Safety Report 16583617 (Version 1)
Quarter: 2019Q3

REPORT INFORMATION
  Report Type: Spontaneous
  Country: FR (occurrence: FR)
  Receive Date: 20190717
  Receipt Date: 20190717
  Transmission Date: 20191004
  Serious: Yes (Other)
  Sender: FDA-Public Use
  Company Number: FR-TEVA-2019-FR-1077215

PATIENT
  Age: 1 Year
  Sex: Male
  Weight: 12 kg

DRUGS (3)
  1. AMOXICILLINE [Suspect]
     Active Substance: AMOXICILLIN
     Indication: EAR INFECTION
     Dosage: 3 DOSAGE FORMS DAILY;
     Route: 048
     Dates: start: 20160816, end: 20160817
  2. ADVIL ENFANTS ET NOURRISSONS 20 MG/1 ML, SUSPENSION BUVABLE EN FLACON [Suspect]
     Active Substance: IBUPROFEN
     Indication: EAR INFECTION
     Route: 048
     Dates: start: 20160816
  3. DOLIPRANE [Concomitant]
     Active Substance: ACETAMINOPHEN

REACTIONS (1)
  - Generalised erythema [Recovered/Resolved]

NARRATIVE: CASE EVENT DATE: 20160817
